FAERS Safety Report 11195903 (Version 1)
Quarter: 2015Q2

REPORT INFORMATION
  Report Type: Spontaneous
  Country: US (occurrence: US)
  Receive Date: 20150617
  Receipt Date: 20150617
  Transmission Date: 20150821
  Serious: Yes (Hospitalization, Other)
  Sender: FDA-Public Use
  Company Number: US-MYLANLABS-2015M1019872

PATIENT

DRUGS (4)
  1. DILANTIN [Suspect]
     Active Substance: PHENYTOIN
     Dosage: 100 MG, TID
     Route: 048
     Dates: start: 201301
  2. PHENYTOIN. [Suspect]
     Active Substance: PHENYTOIN
     Dosage: LOADING DOSE
     Route: 048
     Dates: start: 201301
  3. DILANTIN [Suspect]
     Active Substance: PHENYTOIN
     Dosage: LOADING DOSE
     Route: 048
     Dates: start: 201301
  4. PHENYTOIN. [Suspect]
     Active Substance: PHENYTOIN
     Dosage: 100 MG, TID
     Route: 048
     Dates: start: 201301

REACTIONS (17)
  - Oral mucosal exfoliation [Not Recovered/Not Resolved]
  - Gastric disorder [Not Recovered/Not Resolved]
  - Skin exfoliation [Not Recovered/Not Resolved]
  - Dry eye [Not Recovered/Not Resolved]
  - Mucosal exfoliation [Not Recovered/Not Resolved]
  - Pain [Not Recovered/Not Resolved]
  - Photophobia [Not Recovered/Not Resolved]
  - Injury [Not Recovered/Not Resolved]
  - Fatigue [Not Recovered/Not Resolved]
  - Asthenia [Not Recovered/Not Resolved]
  - Discomfort [Not Recovered/Not Resolved]
  - Eye disorder [Not Recovered/Not Resolved]
  - Rash [Not Recovered/Not Resolved]
  - Visual impairment [Not Recovered/Not Resolved]
  - Blister [Not Recovered/Not Resolved]
  - Arthralgia [Not Recovered/Not Resolved]
  - Skin discolouration [Not Recovered/Not Resolved]
